FAERS Safety Report 7457622-3 (Version None)
Quarter: 2011Q2

REPORT INFORMATION
  Report Type: 
  Country: None (occurrence: None)
  Receive Date: 20110502
  Receipt Date: 20110502
  Transmission Date: 20111010
  Serious: Yes (Death)
  Sender: FDA-Public Use
  Company Number: None

PATIENT
  Age: 19 Year
  Sex: Male
  Weight: 78.4723 kg

DRUGS (3)
  1. OXYMORPHONE [Suspect]
  2. QUETIAPINE [Suspect]
  3. CLONAZEPAM [Suspect]

REACTIONS (5)
  - CONJUNCTIVAL PALLOR [None]
  - PULMONARY OEDEMA [None]
  - SPLENOMEGALY [None]
  - DRUG ABUSER [None]
  - SKIN DISCOLOURATION [None]
